FAERS Safety Report 9106222 (Version 1)
Quarter: 2013Q1

REPORT INFORMATION
  Report Type: Spontaneous
  Country: US (occurrence: US)
  Receive Date: 20130221
  Receipt Date: 20130221
  Transmission Date: 20140127
  Serious: No
  Sender: FDA-Public Use
  Company Number: US-ROXANE LABORATORIES, INC.-2013-RO-00266RO

PATIENT
  Age: 34 Year
  Sex: Male
  Weight: 66 kg

DRUGS (13)
  1. PREDNISONE [Suspect]
     Indication: IDIOPATHIC PULMONARY FIBROSIS
     Dosage: 40 MG
     Dates: start: 20081014, end: 20110301
  2. PREDNISONE [Suspect]
     Dosage: 8 MG
     Dates: start: 20110301
  3. OXYGEN THERAPY [Concomitant]
     Indication: IDIOPATHIC PULMONARY FIBROSIS
     Dates: start: 20081014
  4. OMEPRAZOLE [Concomitant]
     Dosage: 40 MG
     Dates: start: 20020701
  5. ALBUTEROL [Concomitant]
     Indication: ASTHMA
     Route: 055
     Dates: start: 20090515
  6. ALBUTEROL [Concomitant]
     Indication: COUGH
  7. MYCOPHENOLATE [Concomitant]
     Indication: IMMUNE ENHANCEMENT THERAPY
     Dosage: 2000 MG
     Dates: start: 20090315
  8. HYDROCODONE-HOMATROPINE [Concomitant]
     Indication: MUSCULOSKELETAL CHEST PAIN
     Dates: start: 20090315
  9. HYDROCODONE-HOMATROPINE [Concomitant]
     Indication: COUGH
  10. ADVAIR [Concomitant]
     Indication: CHRONIC OBSTRUCTIVE PULMONARY DISEASE
     Route: 055
     Dates: start: 20090315
  11. ADVAIR [Concomitant]
     Indication: COUGH
  12. METFORMIN [Concomitant]
     Indication: TYPE 2 DIABETES MELLITUS
     Dosage: 1000 MG
     Dates: start: 20090315, end: 20120201
  13. METFORMIN [Concomitant]
     Dosage: 500 MG
     Dates: start: 20120201, end: 20120901

REACTIONS (2)
  - Diabetes mellitus [Unknown]
  - Abnormal weight gain [Recovered/Resolved]
